FAERS Safety Report 21784120 (Version 1)
Quarter: 2022Q4

REPORT INFORMATION
  Report Type: Report from Study
  Country: US (occurrence: US)
  Receive Date: 20221227
  Receipt Date: 20221227
  Transmission Date: 20230113
  Serious: No
  Sender: FDA-Public Use
  Company Number: US-ABBVIE-4213870

PATIENT
  Age: 40 Year

DRUGS (2)
  1. HUMIRA [Suspect]
     Active Substance: ADALIMUMAB
     Indication: Rheumatoid arthritis
     Route: 058
     Dates: start: 202201
  2. HUMIRA [Suspect]
     Active Substance: ADALIMUMAB
     Indication: Colitis ulcerative

REACTIONS (5)
  - Condition aggravated [Unknown]
  - Blood iron decreased [Unknown]
  - Nervousness [Unknown]
  - Therapeutic product effect incomplete [Unknown]
  - Urticaria [Unknown]

NARRATIVE: CASE EVENT DATE: 20221101
